FAERS Safety Report 4357050-3 (Version None)
Quarter: 2004Q2

REPORT INFORMATION
  Report Type: 
  Country: None (occurrence: None)
  Receive Date: 20040512
  Receipt Date: 20040512
  Transmission Date: 20050107
  Serious: Yes (Hospitalization)
  Sender: FDA-Public Use
  Company Number: CH-GLAXOSMITHKLINE-B0331706A

PATIENT
  Sex: Female
  Weight: 53 kg

DRUGS (12)
  1. AUGMENTIN [Suspect]
     Indication: CHRONIC OBSTRUCTIVE AIRWAYS DISEASE EXACERBATED
     Dosage: 3600MG PER DAY
     Route: 042
     Dates: start: 20040114, end: 20040119
  2. AUGMENTIN [Suspect]
     Indication: CHRONIC OBSTRUCTIVE AIRWAYS DISEASE EXACERBATED
     Dosage: 1875MG PER DAY
     Route: 048
     Dates: start: 20040120, end: 20040129
  3. FLAGYL [Suspect]
     Dosage: 1500MG PER DAY
     Route: 048
     Dates: start: 20040213, end: 20040223
  4. CIPROFLOXACIN [Suspect]
     Dosage: 1500MG PER DAY
     Route: 048
     Dates: start: 20040213, end: 20040223
  5. PANTAZOL [Concomitant]
     Dosage: 20MG PER DAY
     Route: 048
  6. ASPIRIN CARDIO [Concomitant]
     Dosage: 100MG PER DAY
     Route: 048
  7. FOSAMAX [Concomitant]
     Dosage: 70MG PER DAY
     Route: 048
  8. TORSEMIDE [Concomitant]
     Dosage: 10MG PER DAY
     Route: 048
  9. COVERSUM [Concomitant]
     Dosage: 4MG PER DAY
     Route: 048
  10. CHOLECALCIFEROL [Concomitant]
     Dosage: 4500IU PER DAY
     Route: 048
  11. AXOTIDE [Concomitant]
     Route: 055
  12. SEREVENT [Concomitant]
     Route: 055

REACTIONS (10)
  - ABDOMINAL PAIN UPPER [None]
  - ALANINE AMINOTRANSFERASE INCREASED [None]
  - ANOREXIA [None]
  - ASPARTATE AMINOTRANSFERASE INCREASED [None]
  - ASTHENIA [None]
  - BLOOD ALKALINE PHOSPHATASE INCREASED [None]
  - BLOOD BILIRUBIN INCREASED [None]
  - HEPATITIS CHOLESTATIC [None]
  - JAUNDICE [None]
  - VOMITING [None]
